FAERS Safety Report 9580244 (Version 1)
Quarter: 2013Q4

REPORT INFORMATION
  Report Type: Spontaneous
  Country: US (occurrence: None)
  Receive Date: 20131001
  Receipt Date: 20131001
  Transmission Date: 20140711
  Serious: Yes (Hospitalization)
  Sender: FDA-Public Use
  Company Number: None

PATIENT
  Sex: Male
  Weight: 74.5 kg

DRUGS (1)
  1. NITROGLYCERIN [Suspect]
     Indication: HYPERTENSION

REACTIONS (2)
  - Hyperhidrosis [None]
  - Hypotension [None]
